FAERS Safety Report 4627458-7 (Version None)
Quarter: 2005Q2

REPORT INFORMATION
  Report Type: 
  Country: None (occurrence: None)
  Receive Date: 20050405
  Receipt Date: 20050314
  Transmission Date: 20051028
  Serious: Yes (Other)
  Sender: FDA-Public Use
  Company Number: US_0411107813

PATIENT
  Age: 55 Year
  Sex: Male
  Weight: 109 kg

DRUGS (1)
  1. ZYPREXA [Suspect]
     Indication: SCHIZOAFFECTIVE DISORDER
     Dosage: 10 MG
     Dates: start: 19970101, end: 19981101

REACTIONS (16)
  - ANGER [None]
  - CORONARY ARTERY DISEASE [None]
  - DIABETES MELLITUS [None]
  - DIABETIC COMA [None]
  - DYSLIPIDAEMIA [None]
  - ERECTILE DYSFUNCTION [None]
  - FLASHBACK [None]
  - HALLUCINATION [None]
  - HOMICIDAL IDEATION [None]
  - MAJOR DEPRESSION [None]
  - METABOLIC SYNDROME [None]
  - NEUROGENIC BLADDER [None]
  - NEUROPATHY PERIPHERAL [None]
  - PSYCHOTIC DISORDER [None]
  - SQUAMOUS CELL CARCINOMA [None]
  - SUICIDAL IDEATION [None]
